FAERS Safety Report 19887242 (Version 21)
Quarter: 2024Q2

REPORT INFORMATION
  Report Type: Report from Study
  Country: CN (occurrence: CN)
  Receive Date: 20210927
  Receipt Date: 20240509
  Transmission Date: 20240716
  Serious: Yes (Hospitalization, Other)
  Sender: FDA-Public Use
  Company Number: CN-TAKEDA-2021TUS058210

PATIENT
  Age: 49 Year
  Sex: Female
  Weight: 75 kg

DRUGS (26)
  1. IXAZOMIB [Suspect]
     Active Substance: IXAZOMIB
     Indication: Plasma cell myeloma
     Dosage: 4 MILLIGRAM, 1/WEEK
     Route: 048
     Dates: start: 20201128, end: 20220113
  2. DEXAMETHASONE [Suspect]
     Active Substance: DEXAMETHASONE
     Indication: Plasma cell myeloma
     Dosage: 0.75 MILLIGRAM, QD
     Route: 048
     Dates: start: 20201120
  3. DEXAMETHASONE [Suspect]
     Active Substance: DEXAMETHASONE
     Dosage: 10 MILLIGRAM
     Route: 048
     Dates: start: 20201128
  4. DEXAMETHASONE [Suspect]
     Active Substance: DEXAMETHASONE
     Dosage: 7. MILLIGRAM
     Route: 048
     Dates: start: 20210615
  5. LENALIDOMIDE [Suspect]
     Active Substance: LENALIDOMIDE
     Indication: Plasma cell myeloma
     Dosage: 10 MILLIGRAM
     Route: 048
     Dates: start: 20201128
  6. METOPROLOL SUCCINATE [Concomitant]
     Active Substance: METOPROLOL SUCCINATE
     Indication: Hypertension
     Dosage: 47.5 MILLIGRAM, QD
     Route: 048
     Dates: start: 2019, end: 20210906
  7. METOPROLOL SUCCINATE [Concomitant]
     Active Substance: METOPROLOL SUCCINATE
     Dosage: 23.75 MILLIGRAM, QD
     Route: 048
     Dates: start: 20210907
  8. AMLODIPINE BESYLATE [Concomitant]
     Active Substance: AMLODIPINE BESYLATE
     Indication: Hypertension
     Dosage: 5 MILLIGRAM, QD
     Route: 048
     Dates: start: 2019
  9. OMEPRAZOLE [Concomitant]
     Active Substance: DONEPEZIL HYDROCHLORIDE\OMEPRAZOLE\OMEPRAZOLE MAGNESIUM
     Indication: Prophylaxis
     Dosage: 20 MILLIGRAM, QD
     Route: 048
     Dates: start: 20210316
  10. VITAMIN C [Concomitant]
     Active Substance: ASCORBIC ACID
     Indication: Vitamin supplementation
     Dosage: 2 GRAM, QD
     Route: 042
     Dates: start: 20210901, end: 20210906
  11. VITAMIN B6 [Concomitant]
     Active Substance: PYRIDOXINE HYDROCHLORIDE
     Indication: Vitamin supplementation
     Dosage: 0.2 GRAM, QD
     Route: 042
     Dates: start: 20210901, end: 20210906
  12. POTASSIUM CHLORIDE [Concomitant]
     Active Substance: POTASSIUM CHLORIDE
     Indication: Hypokalaemia
     Dosage: 0.5 GRAM, QD
     Route: 042
     Dates: start: 20210901, end: 20210906
  13. POTASSIUM CHLORIDE [Concomitant]
     Active Substance: POTASSIUM CHLORIDE
     Dosage: 20 MILLILITER
     Route: 048
     Dates: start: 20210902, end: 20210902
  14. POTASSIUM CHLORIDE [Concomitant]
     Active Substance: POTASSIUM CHLORIDE
     Dosage: 1 GRAM, BID
     Route: 048
     Dates: start: 20210902, end: 20210907
  15. LEVAMLODIPINE [Concomitant]
     Active Substance: LEVAMLODIPINE
     Indication: Pulmonary hypertension
     Dosage: 5 MILLIGRAM, QD
     Route: 048
     Dates: start: 20210901, end: 20210907
  16. MILRINONE [Concomitant]
     Active Substance: MILRINONE
     Indication: Pulmonary hypertension
     Dosage: 10 MILLIGRAM, QD
     Route: 042
     Dates: start: 20210901, end: 20210906
  17. ATORVASTATIN CALCIUM [Concomitant]
     Active Substance: ATORVASTATIN CALCIUM
     Indication: Lipids decreased
     Dosage: 20 MILLIGRAM, QD
     Route: 048
     Dates: start: 20210901
  18. PHENTOLAMINE [Concomitant]
     Active Substance: PHENTOLAMINE
     Indication: Pulmonary arterial hypertension
     Dosage: 10 MILLIGRAM, QD
     Route: 042
     Dates: start: 20210906, end: 20210910
  19. AMBRISENTAN [Concomitant]
     Active Substance: AMBRISENTAN
     Indication: Pulmonary arterial hypertension
     Dosage: 5 MILLIGRAM, BID
     Route: 048
     Dates: start: 20210906, end: 20210910
  20. SODIUM BICARBONATE [Concomitant]
     Active Substance: SODIUM BICARBONATE
     Indication: Urine alkalinisation therapy
     Dosage: 30 MILLILITER, QD
     Route: 042
     Dates: start: 20220112, end: 20220113
  21. LIDOCAINE [Concomitant]
     Active Substance: LIDOCAINE
     Indication: Local anaesthesia
     Dosage: 0.1 GRAM
     Route: 065
     Dates: start: 20220111, end: 20220111
  22. GADOTERATE SODIUM [Concomitant]
     Active Substance: GADOTERATE SODIUM
     Indication: Contrast echocardiogram
     Dosage: 20 MILLILITER
     Route: 042
     Dates: start: 20210113, end: 20210113
  23. METHYLPREDNISOLONE SODIUM PHOSPHATE [Concomitant]
     Active Substance: METHYLPREDNISOLONE SODIUM PHOSPHATE
     Dosage: 80 MILLIGRAM
     Route: 042
     Dates: start: 20220113, end: 20220113
  24. CIMETIDINE [Concomitant]
     Active Substance: CIMETIDINE
     Dosage: 0.3 GRAM
     Route: 042
     Dates: start: 20220113, end: 20220113
  25. ALBUTEROL [Concomitant]
     Active Substance: ALBUTEROL
     Dosage: UNK, BID
     Route: 055
     Dates: start: 20220113
  26. ACETAMINOPHEN [Concomitant]
     Active Substance: ACETAMINOPHEN
     Dosage: 0.65 GRAM
     Route: 048
     Dates: start: 20220113

REACTIONS (12)
  - Pulmonary arterial hypertension [Recovered/Resolved]
  - Cor pulmonale chronic [Not Recovered/Not Resolved]
  - Cardiac failure chronic [Not Recovered/Not Resolved]
  - Carotid arteriosclerosis [Not Recovered/Not Resolved]
  - Cardiac failure [Not Recovered/Not Resolved]
  - Hypokalaemia [Recovered/Resolved]
  - Platelet count decreased [Not Recovered/Not Resolved]
  - Hyperglycaemia [Not Recovered/Not Resolved]
  - Corneal abrasion [Recovered/Resolved]
  - Hepatic steatosis [Not Recovered/Not Resolved]
  - Conjunctivitis [Recovered/Resolved]
  - Off label use [Unknown]

NARRATIVE: CASE EVENT DATE: 20210224
